FAERS Safety Report 16209525 (Version 5)
Quarter: 2021Q2

REPORT INFORMATION
  Report Type: Report from Study
  Country: JP (occurrence: JP)
  Receive Date: 20190417
  Receipt Date: 20210517
  Transmission Date: 20210716
  Serious: Yes (Death, Life-Threatening)
  Sender: FDA-Public Use
  Company Number: JP-PFIZER INC-2019158250

PATIENT
  Age: 75 Year
  Sex: Female
  Weight: 38.45 kg

DRUGS (15)
  1. XALKORI [Suspect]
     Active Substance: CRIZOTINIB
     Indication: NON-SMALL CELL LUNG CANCER
     Dosage: 250 MG, 1X/DAY
     Route: 048
     Dates: start: 20190401, end: 20190401
  2. AMLODIPINE BESYLATE. [Concomitant]
     Active Substance: AMLODIPINE BESYLATE
     Indication: HYPERTENSION
     Dosage: 5 MG, DAILY
     Route: 048
     Dates: start: 2017, end: 20190409
  3. NALDEMEDINE TOSILATE [Concomitant]
     Active Substance: NALDEMEDINE TOSYLATE
     Indication: CONSTIPATION
     Dosage: 0.2 MG, DAILY
     Route: 048
     Dates: start: 20190305, end: 20190410
  4. OLANZAPINE. [Concomitant]
     Active Substance: OLANZAPINE
     Indication: NAUSEA
     Dosage: UNK
     Route: 048
     Dates: start: 20190401, end: 20190401
  5. SITAGLIPTIN PHOSPHATE MONOHYDRATE [Concomitant]
     Active Substance: SITAGLIPTIN PHOSPHATE
     Indication: DIABETES MELLITUS
     Dosage: 5 MG, DAILY
     Route: 048
     Dates: start: 2004, end: 20190409
  6. GRANISETRON HYDROCHLORIDE. [Concomitant]
     Active Substance: GRANISETRON HYDROCHLORIDE
     Indication: NAUSEA
     Dosage: UNK
     Route: 048
     Dates: start: 20190402, end: 20190403
  7. HYDROXYZINE [Concomitant]
     Active Substance: HYDROXYZINE HYDROCHLORIDE
     Indication: NAUSEA
     Dosage: UNK
     Route: 048
     Dates: start: 20190402, end: 20190409
  8. MAGNESIUM OXIDE. [Concomitant]
     Active Substance: MAGNESIUM OXIDE
     Indication: CONSTIPATION
     Dosage: UNK
     Route: 048
     Dates: start: 20190305, end: 20190406
  9. BAYASPIRIN [Concomitant]
     Active Substance: ASPIRIN
     Indication: CEREBRAL INFARCTION
     Dosage: 100 MG, DAILY
     Route: 048
     Dates: start: 2004, end: 20190410
  10. LANSOPRAZOLE. [Concomitant]
     Active Substance: LANSOPRAZOLE
     Indication: NAUSEA
     Dosage: 15 MG, DAILY
     Route: 048
     Dates: start: 20190401, end: 20190401
  11. NORMAL SALINE [Concomitant]
     Active Substance: SODIUM CHLORIDE
     Indication: DECREASED APPETITE
     Dosage: 500 ML, DAILY
     Route: 041
     Dates: start: 20190409
  12. MORPHINE SULFATE. [Concomitant]
     Active Substance: MORPHINE SULFATE
     Indication: TUMOUR PAIN
     Dosage: 20 MG, DAILY
     Route: 048
     Dates: start: 20190218, end: 20190410
  13. DEXAMETHASONE. [Concomitant]
     Active Substance: DEXAMETHASONE
     Indication: NAUSEA
     Dosage: UNK
     Route: 048
     Dates: start: 20190302, end: 20190403
  14. XALKORI [Suspect]
     Active Substance: CRIZOTINIB
     Dosage: 250 MG, 2X/DAY
     Route: 048
     Dates: start: 20190402, end: 20190409
  15. METOCLOPRAMIDE. [Concomitant]
     Active Substance: METOCLOPRAMIDE
     Indication: NAUSEA
     Dosage: 15 MG, DAILY
     Route: 048
     Dates: start: 20190408, end: 20190409

REACTIONS (1)
  - Generalised oedema [Recovering/Resolving]

NARRATIVE: CASE EVENT DATE: 20190410
